FAERS Safety Report 20867609 (Version 2)
Quarter: 2022Q2

REPORT INFORMATION
  Report Type: Spontaneous
  Country: FI (occurrence: FI)
  Receive Date: 20220524
  Receipt Date: 20220531
  Transmission Date: 20220720
  Serious: Yes (Life-Threatening, Hospitalization, Other)
  Sender: FDA-Public Use
  Company Number: FI-MLMSERVICE-20220513-3555839-1

PATIENT
  Age: 9 Year
  Sex: Male

DRUGS (1)
  1. DOXORUBICIN HYDROCHLORIDE [Suspect]
     Active Substance: DOXORUBICIN HYDROCHLORIDE
     Indication: Osteosarcoma
     Dosage: CUMULATIVE DOXORUBICIN DOSE OF 450 MG/M2 AT COMPLETION OF TREATMENT

REACTIONS (3)
  - Pericardial effusion [Recovered/Resolved]
  - Cardiac failure chronic [Recovered/Resolved]
  - Cardiomyopathy [Recovered/Resolved]
